FAERS Safety Report 7763771-2 (Version None)
Quarter: 2011Q3

REPORT INFORMATION
  Report Type: 
  Country: None (occurrence: None)
  Receive Date: 20110919
  Receipt Date: 20110906
  Transmission Date: 20111222
  Serious: Yes (Life-Threatening, Hospitalization, Other)
  Sender: FDA-Public Use
  Company Number: DSA_47577_2011

PATIENT
  Age: 13 Year
  Sex: Female

DRUGS (1)
  1. DILTIAZEM [Suspect]
     Indication: PRODUCT USED FOR UNKNOWN INDICATION
     Dosage: (4.2 G 1X)

REACTIONS (10)
  - METABOLIC ACIDOSIS [None]
  - LEFT VENTRICULAR DYSFUNCTION [None]
  - HAEMODIALYSIS [None]
  - INTENTIONAL OVERDOSE [None]
  - CARDIOGENIC SHOCK [None]
  - RENAL FAILURE ACUTE [None]
  - SHOCK [None]
  - MULTI-ORGAN FAILURE [None]
  - CONVULSION [None]
  - HYPERINSULINAEMIA [None]
